FAERS Safety Report 6360065-7 (Version None)
Quarter: 2009Q3

REPORT INFORMATION
  Report Type: 
  Country: None (occurrence: None)
  Receive Date: 20090917
  Receipt Date: 20090910
  Transmission Date: 20100115
  Serious: Yes (Disabling)
  Sender: FDA-Public Use
  Company Number: PHHY2009IT30480

PATIENT
  Sex: Female

DRUGS (5)
  1. ZOMETA [Suspect]
     Indication: BREAST CANCER
     Dosage: UNK
     Route: 042
     Dates: start: 20070302, end: 20080831
  2. ZOMETA [Suspect]
     Indication: METASTASES TO BONE
  3. LOBIVON [Concomitant]
  4. LERCADIP [Concomitant]
  5. LANSOX [Concomitant]

REACTIONS (1)
  - OSTEONECROSIS [None]
